FAERS Safety Report 8987052 (Version 2)
Quarter: 2013Q1

REPORT INFORMATION
  Report Type: Spontaneous
  Country: US (occurrence: US)
  Receive Date: 20121227
  Receipt Date: 20130220
  Transmission Date: 20140127
  Serious: No
  Sender: FDA-Public Use
  Company Number: US-009507513-1212USA005225

PATIENT
  Sex: 0

DRUGS (1)
  1. SAPHRIS [Suspect]
     Route: 060

REACTIONS (2)
  - Palpitations [Unknown]
  - Anxiety [Unknown]
